FAERS Safety Report 10083775 (Version 1)
Quarter: 2014Q2

REPORT INFORMATION
  Report Type: Spontaneous
  Country: US (occurrence: None)
  Receive Date: 20140416
  Receipt Date: 20140416
  Transmission Date: 20141212
  Serious: Yes (Hospitalization)
  Sender: FDA-Public Use
  Company Number: None

PATIENT
  Age: 78 Year
  Sex: Female
  Weight: 61.32 kg

DRUGS (2)
  1. CARBOPLATIN [Suspect]
     Dosage: GIVEN ON DAY 1
     Dates: start: 20140318
  2. PACLITAXEL (TAXOL) [Suspect]
     Dosage: GIVEN AS 97 MG DAY 1,8, + 15 (GIVEN 3/18, 25, + 4/1)

REACTIONS (5)
  - Dyspnoea [None]
  - Diarrhoea [None]
  - Dyspnoea exertional [None]
  - Pulmonary embolism [None]
  - Dilatation ventricular [None]
